FAERS Safety Report 6571198-4 (Version None)
Quarter: 2010Q1

REPORT INFORMATION
  Report Type: 
  Country: None (occurrence: None)
  Receive Date: 20100129
  Receipt Date: 20100118
  Transmission Date: 20100710
  Serious: Yes (Hospitalization)
  Sender: FDA-Public Use
  Company Number: 2010SP000182

PATIENT
  Age: 68 Year
  Sex: Female
  Weight: 70.7 kg

DRUGS (12)
  1. BROVANA [Suspect]
     Indication: CHRONIC OBSTRUCTIVE PULMONARY DISEASE
     Dosage: 15 UG/2ML;BID;INHALATION
     Route: 055
  2. XOPENEX [Suspect]
     Indication: CHRONIC OBSTRUCTIVE PULMONARY DISEASE
     Dosage: 1.25 MG/3ML;TID;INHALATION; 1.25 MG/3ML;QH4;INHALATION; 1.25  MG/3ML;TID;INHALATION
     Route: 055
     Dates: start: 20080301, end: 20080301
  3. XOPENEX [Suspect]
     Indication: CHRONIC OBSTRUCTIVE PULMONARY DISEASE
     Dosage: 1.25 MG/3ML;TID;INHALATION; 1.25 MG/3ML;QH4;INHALATION; 1.25  MG/3ML;TID;INHALATION
     Route: 055
     Dates: end: 20080301
  4. XOPENEX [Suspect]
     Indication: CHRONIC OBSTRUCTIVE PULMONARY DISEASE
     Dosage: 1.25 MG/3ML;TID;INHALATION; 1.25 MG/3ML;QH4;INHALATION; 1.25  MG/3ML;TID;INHALATION
     Route: 055
     Dates: start: 20080301
  5. ACTONEL [Concomitant]
  6. NEXIUM [Concomitant]
  7. NORVASC [Concomitant]
  8. SINGULAIR [Concomitant]
  9. VITAMIN D [Concomitant]
  10. ZOCOR [Concomitant]
  11. ZYRTEC [Concomitant]
  12. PULMICORT [Concomitant]

REACTIONS (13)
  - ANXIETY [None]
  - BLOOD GLUCOSE INCREASED [None]
  - BLOOD POTASSIUM DECREASED [None]
  - CHRONIC OBSTRUCTIVE PULMONARY DISEASE [None]
  - CONDITION AGGRAVATED [None]
  - DIARRHOEA [None]
  - DYSKINESIA OESOPHAGEAL [None]
  - EPISTAXIS [None]
  - HERPES ZOSTER [None]
  - LARGE INTESTINAL ULCER [None]
  - LOWER GASTROINTESTINAL HAEMORRHAGE [None]
  - NASAL SEPTUM DEVIATION [None]
  - WEIGHT INCREASED [None]
